FAERS Safety Report 12254899 (Version 1)
Quarter: 2016Q2

REPORT INFORMATION
  Report Type: Spontaneous
  Country: US (occurrence: US)
  Receive Date: 20160411
  Receipt Date: 20160411
  Transmission Date: 20160815
  Serious: No
  Sender: FDA-Public Use
  Company Number: US-TEIKOKU PHARMA USA-TPU2016-00201

PATIENT
  Sex: Female

DRUGS (5)
  1. LIDODERM [Suspect]
     Active Substance: LIDOCAINE
     Indication: BACK PAIN
     Route: 061
  2. LIDOCAINE PATCH 5% [Suspect]
     Active Substance: LIDOCAINE
     Indication: PAIN
     Route: 061
  3. LIDODERM [Suspect]
     Active Substance: LIDOCAINE
     Route: 061
  4. TYLENOL EXTRA STRENGTH [Concomitant]
     Active Substance: ACETAMINOPHEN
     Indication: ARTHRITIS
     Route: 048
  5. LIDODERM [Suspect]
     Active Substance: LIDOCAINE
     Route: 061

REACTIONS (3)
  - Nausea [Unknown]
  - Drug ineffective for unapproved indication [Unknown]
  - Application site pain [Unknown]
